FAERS Safety Report 5972980-4 (Version None)
Quarter: 2008Q4

REPORT INFORMATION
  Report Type: 
  Country: None (occurrence: None)
  Receive Date: 20081201
  Receipt Date: 20081121
  Transmission Date: 20090506
  Serious: Yes (Hospitalization, Other)
  Sender: FDA-Public Use
  Company Number: PHHY2008AU22582

PATIENT
  Sex: Male

DRUGS (4)
  1. CLOZARIL [Suspect]
     Dosage: UNK
  2. CLOZARIL [Suspect]
     Dosage: 125MG DAILY
  3. CLOZARIL [Suspect]
     Dosage: 250MG DAILY
     Dates: end: 20080919
  4. CLOZARIL [Suspect]
     Dosage: 12.5MG TO START AND TITRATE BY 12.5MG DAILY
     Dates: end: 20081108

REACTIONS (12)
  - BLOOD PRESSURE INCREASED [None]
  - CARDIAC DISORDER [None]
  - ELECTROCARDIOGRAM ABNORMAL [None]
  - EOSINOPHIL COUNT INCREASED [None]
  - MONOCYTOSIS [None]
  - NEUTROPHILIA [None]
  - OROPHARYNGEAL PAIN [None]
  - PHARYNGITIS [None]
  - PYREXIA [None]
  - TACHYCARDIA [None]
  - TROPONIN INCREASED [None]
  - WHITE BLOOD CELL COUNT INCREASED [None]
